FAERS Safety Report 15775174 (Version 4)
Quarter: 2020Q3

REPORT INFORMATION
  Report Type: Report from Study
  Country: CN (occurrence: CN)
  Receive Date: 20181231
  Receipt Date: 20190220
  Transmission Date: 20201104
  Serious: Yes (Hospitalization)
  Sender: FDA-Public Use
  Company Number: CN-ROCHE-2235413

PATIENT
  Age: 67 Year
  Sex: Male
  Weight: 57 kg

DRUGS (43)
  1. ALECTINIB. [Suspect]
     Active Substance: ALECTINIB
     Indication: NON-SMALL CELL LUNG CANCER
     Dosage: DATE OF MOST RECENT DOSE OF ALECTINIB (600 MG) PRIOR TO SAE: 14/DEC/2018.
     Route: 048
     Dates: start: 20161216
  2. MEDIUM AND LONG CHAIN FAT EMULSION INJECTION [Concomitant]
     Active Substance: LIPOSYN (R) INTRAVENOUS FAT EMULSION
     Indication: NUTRITIONAL SUPPLEMENTATION
     Route: 065
     Dates: start: 20181222, end: 20181225
  3. MEDIUM AND LONG CHAIN FAT EMULSION INJECTION [Concomitant]
     Active Substance: LIPOSYN (R) INTRAVENOUS FAT EMULSION
     Route: 065
     Dates: start: 20181227, end: 20190103
  4. ESTAZOLAM. [Concomitant]
     Active Substance: ESTAZOLAM
     Route: 065
     Dates: start: 20181228, end: 20181228
  5. AMBROXOL HYDROCHLORIDE [Concomitant]
     Active Substance: AMBROXOL HYDROCHLORIDE
     Route: 065
     Dates: start: 20181222, end: 20190103
  6. CEFTRIAXONE SODIUM. [Concomitant]
     Active Substance: CEFTRIAXONE SODIUM
     Route: 065
     Dates: start: 20181221, end: 20181227
  7. GLUCOSE [Concomitant]
     Active Substance: DEXTROSE
     Route: 065
     Dates: start: 20181225, end: 20190103
  8. MEGESTROL ACETATE. [Concomitant]
     Active Substance: MEGESTROL ACETATE
     Route: 065
     Dates: start: 20181221, end: 20181226
  9. VITAMIN B6 [Concomitant]
     Active Substance: PYRIDOXINE HYDROCHLORIDE
     Route: 065
     Dates: start: 20181221, end: 20181222
  10. NOVOLTEN [Concomitant]
     Indication: RHEUMATOID ARTHRITIS
     Route: 065
     Dates: start: 20161216
  11. LEFLUNOMIDE. [Concomitant]
     Active Substance: LEFLUNOMIDE
     Indication: RHEUMATOID ARTHRITIS
     Route: 065
     Dates: start: 20161216
  12. PANTOPRAZOLE SODIUM. [Concomitant]
     Active Substance: PANTOPRAZOLE SODIUM
     Indication: GASTRIC LAVAGE
     Dosage: AT 12.19
     Route: 065
     Dates: start: 20181218
  13. ESTAZOLAM. [Concomitant]
     Active Substance: ESTAZOLAM
     Route: 065
     Dates: start: 20181231, end: 20181231
  14. SODIUM CHLORIDE. [Concomitant]
     Active Substance: SODIUM CHLORIDE
     Route: 065
     Dates: start: 20181221, end: 20181222
  15. SULPERAZON [Concomitant]
     Active Substance: CEFOPERAZONE SODIUM\SULBACTAM SODIUM
     Route: 065
     Dates: start: 20181228, end: 20190103
  16. LIDOCAINE HYDROCHLORIDE. [Concomitant]
     Active Substance: LIDOCAINE HYDROCHLORIDE
     Indication: HYPOAESTHESIA
     Route: 065
     Dates: start: 20181222, end: 20181222
  17. CALCIUM GLUCONATE. [Concomitant]
     Active Substance: CALCIUM GLUCONATE
     Route: 065
     Dates: start: 20181223, end: 20181223
  18. SODIUM CHLORIDE. [Concomitant]
     Active Substance: SODIUM CHLORIDE
     Route: 065
     Dates: start: 20181225, end: 20181228
  19. VITAMIN B6 [Concomitant]
     Active Substance: PYRIDOXINE HYDROCHLORIDE
  20. LEVOFLOXACIN. [Concomitant]
     Active Substance: LEVOFLOXACIN
     Dosage: AT 12.20
     Route: 065
     Dates: start: 20181218
  21. GLUCOSE [Concomitant]
     Active Substance: DEXTROSE
     Route: 065
     Dates: start: 20181221, end: 20181222
  22. POTASSIUM CHLORIDE. [Concomitant]
     Active Substance: POTASSIUM CHLORIDE
     Indication: MINERAL SUPPLEMENTATION
     Route: 065
     Dates: start: 20190101, end: 20190113
  23. DEXMEDETOMIDINE HYDROCHLORIDE. [Concomitant]
     Active Substance: DEXMEDETOMIDINE HYDROCHLORIDE
     Indication: SEDATION
     Route: 065
     Dates: start: 20181223, end: 20181223
  24. MONTMORILLONITE [Concomitant]
     Active Substance: MONTMORILLONITE
     Route: 065
     Dates: start: 20181218, end: 20181220
  25. ESTAZOLAM. [Concomitant]
     Active Substance: ESTAZOLAM
     Dosage: AT 12.20
     Route: 065
     Dates: start: 20181218
  26. POTASSIUM CHLORIDE. [Concomitant]
     Active Substance: POTASSIUM CHLORIDE
     Indication: POLYURIA
     Route: 065
     Dates: start: 20181221, end: 20190103
  27. ESTAZOLAM. [Concomitant]
     Active Substance: ESTAZOLAM
     Route: 065
     Dates: start: 20181218, end: 20181220
  28. SODIUM CHLORIDE. [Concomitant]
     Active Substance: SODIUM CHLORIDE
     Route: 065
     Dates: start: 20181221, end: 20181221
  29. PANTOPRAZOLE SODIUM. [Concomitant]
     Active Substance: PANTOPRAZOLE SODIUM
     Route: 065
     Dates: start: 20181222, end: 20181223
  30. PANTOPRAZOLE SODIUM. [Concomitant]
     Active Substance: PANTOPRAZOLE SODIUM
     Route: 065
     Dates: start: 20181218, end: 20181219
  31. IPRATROPIUM BROMIDE. [Concomitant]
     Active Substance: IPRATROPIUM BROMIDE
     Route: 065
     Dates: start: 20181223, end: 20181225
  32. PANTOPRAZOLE SODIUM. [Concomitant]
     Active Substance: PANTOPRAZOLE SODIUM
     Route: 065
     Dates: start: 20181225, end: 20190103
  33. GLUCOSE [Concomitant]
     Active Substance: DEXTROSE
     Route: 065
     Dates: start: 20181219
  34. EOSINOPHIL?LACTOBACILLUS [Concomitant]
     Route: 065
     Dates: start: 20181221, end: 20181225
  35. HUMAN ALBUMIN [Concomitant]
     Active Substance: ALBUMIN HUMAN
     Indication: BLOOD ALBUMIN DECREASED
     Route: 065
     Dates: start: 20181222, end: 20181223
  36. RED BLOOD CELLS [Concomitant]
     Active Substance: HUMAN RED BLOOD CELL
     Indication: ANAEMIA
     Route: 065
     Dates: start: 20181222, end: 20181222
  37. PULMICORT RESPULES [Concomitant]
     Active Substance: BUDESONIDE
     Route: 065
     Dates: start: 20181223, end: 20181225
  38. COMPOUND AMINO ACID 18AA [Concomitant]
     Route: 065
     Dates: start: 20181222, end: 20181225
  39. LEVOFLOXACIN. [Concomitant]
     Active Substance: LEVOFLOXACIN
     Route: 065
     Dates: start: 20181228, end: 20190103
  40. INSULIN [Concomitant]
     Active Substance: INSULIN NOS
     Route: 065
     Dates: start: 20181222, end: 20181225
  41. ESTAZOLAM. [Concomitant]
     Active Substance: ESTAZOLAM
     Route: 065
     Dates: start: 20181225, end: 20181225
  42. ESTAZOLAM. [Concomitant]
     Active Substance: ESTAZOLAM
     Route: 065
     Dates: start: 20190101, end: 20190102
  43. VITAMIN C [Concomitant]
     Active Substance: ASCORBIC ACID
     Route: 065
     Dates: start: 20181225, end: 20190103

REACTIONS (2)
  - Platelet count decreased [Recovered/Resolved]
  - Acute kidney injury [Recovered/Resolved]

NARRATIVE: CASE EVENT DATE: 20181221
